FAERS Safety Report 7788630-0 (Version None)
Quarter: 2011Q3

REPORT INFORMATION
  Report Type: 
  Country: None (occurrence: None)
  Receive Date: 20110928
  Receipt Date: 20110913
  Transmission Date: 20111222
  Serious: Yes (Other)
  Sender: FDA-Public Use
  Company Number: 1041955

PATIENT
  Age: 1 Day
  Sex: Male

DRUGS (1)
  1. DEXTROSE 10% [Suspect]
     Indication: PRODUCT USED FOR UNKNOWN INDICATION
     Dosage: INTRAVENOUS DRIP
     Route: 041
     Dates: start: 20110825

REACTIONS (3)
  - BLOOD GLUCOSE DECREASED [None]
  - DEVICE COMPUTER ISSUE [None]
  - INCORRECT DRUG ADMINISTRATION RATE [None]
